FAERS Safety Report 8842586 (Version 3)
Quarter: 2012Q4

REPORT INFORMATION
  Report Type: 
  Country: US (occurrence: US)
  Receive Date: 20121016
  Receipt Date: 20121120
  Transmission Date: 20130627
  Serious: Yes (Other)
  Sender: FDA-Public Use
  Company Number: US-PFIZER INC-2012257165

PATIENT
  Age: 68 Year
  Sex: Female
  Weight: 72.56 kg

DRUGS (3)
  1. LYRICA [Suspect]
     Indication: SHINGLES
     Dosage: 100 mg, 2x/day
     Route: 048
     Dates: start: 2004
  2. LYRICA [Suspect]
     Indication: POST HERPETIC NEURALGIA
     Dosage: 100 mg, 3x/day
     Route: 048
     Dates: start: 200606
  3. ALENDRONATE SODIUM [Concomitant]
     Indication: OSTEOPOROSIS
     Dosage: UNK

REACTIONS (2)
  - Leukaemia [Unknown]
  - Drug effect incomplete [Unknown]
